FAERS Safety Report 10052172 (Version 1)
Quarter: 2014Q2

REPORT INFORMATION
  Report Type: Spontaneous
  Country: US (occurrence: None)
  Receive Date: 20140401
  Receipt Date: 20140401
  Transmission Date: 20141212
  Serious: Yes (Other)
  Sender: FDA-Public Use
  Company Number: None

PATIENT
  Age: 56 Year
  Sex: Female

DRUGS (2)
  1. LIPOSOMAL DOXORUBICIN [Suspect]
     Indication: NEOPLASM MALIGNANT
     Dosage: 20MG/10ML AND 50MG/25 ML VIALS
     Dates: start: 20140220
  2. LIPOSOMAL DOXORUBICIN [Suspect]
     Dosage: 20MG/10ML
     Dates: start: 20140327

REACTIONS (8)
  - Back pain [None]
  - Infusion related reaction [None]
  - Flushing [None]
  - Dizziness [None]
  - Dyspnoea [None]
  - Chest discomfort [None]
  - Headache [None]
  - Drug hypersensitivity [None]
